FAERS Safety Report 5011720-2 (Version None)
Quarter: 2006Q2

REPORT INFORMATION
  Report Type: 
  Country: None (occurrence: None)
  Receive Date: 20060526
  Receipt Date: 20060516
  Transmission Date: 20061013
  Serious: Yes (Hospitalization)
  Sender: FDA-Public Use
  Company Number: JP-NOVOPROD-253512

PATIENT
  Age: 38 Year
  Sex: Female

DRUGS (5)
  1. NOVOLIN N [Suspect]
     Indication: DIABETES MELLITUS
     Dates: end: 20060505
  2. NOVOLIN R [Concomitant]
     Indication: DIABETES MELLITUS
     Dosage: 24 IU
     Route: 058
     Dates: end: 20060505
  3. ALESION [Concomitant]
     Route: 048
     Dates: start: 20060511
  4. CORTRIL [Concomitant]
     Route: 048
     Dates: start: 20060508
  5. ALLEGRA                            /01314202/ [Concomitant]
     Route: 048
     Dates: start: 20060509

REACTIONS (2)
  - ANTI-INSULIN ANTIBODY POSITIVE [None]
  - HYPOAESTHESIA ORAL [None]
